FAERS Safety Report 16423927 (Version 1)
Quarter: 2019Q2

REPORT INFORMATION
  Report Type: Report from Study
  Country: IT (occurrence: IT)
  Receive Date: 20190613
  Receipt Date: 20190613
  Transmission Date: 20190711
  Serious: Yes (Other)
  Sender: FDA-Public Use
  Company Number: IT-TEVA-2019-IT-1060765

PATIENT
  Age: 83 Year
  Sex: Female
  Weight: 60 kg

DRUGS (9)
  1. CEFTRIAXONE. [Suspect]
     Active Substance: CEFTRIAXONE
     Dosage: 2 GRAM DAILY;
     Dates: start: 20190312
  2. ENALAPRIL [Concomitant]
     Active Substance: ENALAPRIL
  3. AMIODARONE [Suspect]
     Active Substance: AMIODARONE
     Dosage: 200 MILLIGRAM DAILY;
     Route: 048
     Dates: start: 20190310
  4. LANSOPRAZOLE. [Suspect]
     Active Substance: LANSOPRAZOLE
     Dosage: 30 MILLIGRAM DAILY;
     Route: 048
     Dates: start: 20190310
  5. CANRENONE [Concomitant]
     Active Substance: CANRENONE
  6. ATORVASTATIN [Concomitant]
     Active Substance: ATORVASTATIN
  7. SERTRALINE [Suspect]
     Active Substance: SERTRALINE HYDROCHLORIDE
     Indication: DEPRESSION
     Dosage: 50 MILLIGRAM DAILY;
     Route: 048
     Dates: start: 20190310
  8. FUROSEMIDE. [Suspect]
     Active Substance: FUROSEMIDE
     Dosage: 40 MILLIGRAM DAILY;
     Dates: start: 20190312
  9. POTASSIUM CHLORIDE. [Concomitant]
     Active Substance: POTASSIUM CHLORIDE

REACTIONS (2)
  - Electrocardiogram QT prolonged [Unknown]
  - Drug interaction [Unknown]

NARRATIVE: CASE EVENT DATE: 20190314
